FAERS Safety Report 5645908-4 (Version None)
Quarter: 2008Q1

REPORT INFORMATION
  Report Type: 
  Country: None (occurrence: None)
  Receive Date: 20080227
  Receipt Date: 20080214
  Transmission Date: 20080703
  Serious: Yes (Other)
  Sender: FDA-Public Use
  Company Number: 2008-172328-NL

PATIENT
  Age: 85 Year
  Sex: Female

DRUGS (3)
  1. MIRTAZAPINE [Suspect]
     Dosage: 7.5 MG DAILY, STARTED APPROXIMATELY 3 WEEKS PRIOR TO EVENT
  2. MIRTAZAPINE [Suspect]
     Dosage: 22.5 MG QD, STARATED 4 DAYS PRIOR TO EVENT
  3. TRAMADOL HCL [Suspect]
     Dosage: 100 MG TID

REACTIONS (6)
  - BRONCHOSPASM [None]
  - CONFUSIONAL STATE [None]
  - HYPOTENSION [None]
  - HYPOXIA [None]
  - LETHARGY [None]
  - SEROTONIN SYNDROME [None]
